FAERS Safety Report 6310881-2 (Version None)
Quarter: 2009Q3

REPORT INFORMATION
  Report Type: 
  Country: None (occurrence: None)
  Receive Date: 20090812
  Receipt Date: 20090731
  Transmission Date: 20100115
  Serious: Yes (Hospitalization)
  Sender: FDA-Public Use
  Company Number: 20090344

PATIENT
  Age: 23 Year
  Sex: Female

DRUGS (19)
  1. VENOFER (IRON SUCROSE INJECTION [Suspect]
     Indication: ANAEMIA
     Dosage: 300 MG INTRAVENOUS
     Route: 042
     Dates: start: 20090715, end: 20090715
  2. VENOFER [Suspect]
     Indication: ANAEMIA
     Dosage: 300 MG, INTRAVENOUS
     Route: 042
     Dates: start: 20090717, end: 20090717
  3. VENOFER [Suspect]
     Dosage: 300 MG, INTRAVENOUS
     Route: 042
     Dates: start: 20090717, end: 20090717
  4. TAGAMET [Concomitant]
  5. SYNTOCINON [Concomitant]
  6. SUFENTA [Concomitant]
  7. DIPRIVAN [Concomitant]
  8. TRACRIUM [Concomitant]
  9. CELOCURINE (SUXAMETHONIUM) [Concomitant]
  10. PERFALGAN (PARACETAMOL) [Concomitant]
  11. PROFENID (KETOPROFENE) [Concomitant]
  12. MORPHINE [Concomitant]
  13. RINGER'S [Concomitant]
  14. GLUCIDION (SODIUM CHLORIDE) [Concomitant]
  15. LOVENOX [Concomitant]
  16. RUDIVAX (RUBELLA STRAIN  WISTAR RA 27/3) [Concomitant]
  17. ANTISPASMODIC DRUGS [Concomitant]
  18. CLAMOXYL (AMOXOCILLIN) [Concomitant]
  19. CEFOXITIN [Concomitant]

REACTIONS (3)
  - DYSPNOEA [None]
  - PULMONARY EMBOLISM [None]
  - THROMBOPHLEBITIS SUPERFICIAL [None]
